FAERS Safety Report 14630589 (Version 1)
Quarter: 2018Q1

REPORT INFORMATION
  Report Type: Spontaneous
  Country: US (occurrence: US)
  Receive Date: 20180313
  Receipt Date: 20180313
  Transmission Date: 20180509
  Serious: No
  Sender: FDA-Public Use
  Company Number: US-GLAXOSMITHKLINE-US2018040651

PATIENT
  Sex: Female

DRUGS (3)
  1. BENLYSTA [Suspect]
     Active Substance: BELIMUMAB
     Indication: SYSTEMIC LUPUS ERYTHEMATOSUS
     Dosage: 200 MG, CYC
     Route: 058
  2. BENLYSTA [Concomitant]
     Active Substance: BELIMUMAB
  3. CELEBREX [Concomitant]
     Active Substance: CELECOXIB

REACTIONS (4)
  - Drug ineffective [Unknown]
  - Pain [Unknown]
  - Lethargy [Unknown]
  - Fatigue [Unknown]
